FAERS Safety Report 18418882 (Version 1)
Quarter: 2020Q4

REPORT INFORMATION
  Report Type: Spontaneous
  Country: US (occurrence: US)
  Receive Date: 20201022
  Receipt Date: 20201022
  Transmission Date: 20210114
  Serious: Yes (Hospitalization)
  Sender: FDA-Public Use
  Company Number: None

PATIENT
  Age: 68 Year
  Sex: Female
  Weight: 48.99 kg

DRUGS (21)
  1. MYCOPHENOLATE MOFETIL. [Concomitant]
     Active Substance: MYCOPHENOLATE MOFETIL
  2. DIPHENHYDRAMINE 50 MG/ML VIAL [Concomitant]
  3. AVASTIN [Concomitant]
     Active Substance: BEVACIZUMAB
  4. EMEND [Concomitant]
     Active Substance: APREPITANT
  5. AMLODIPINE BESYLATE. [Concomitant]
     Active Substance: AMLODIPINE BESYLATE
  6. FAMOTIDINE 20 MG/2 ML VIAL [Concomitant]
  7. DEXAMETHASONE. [Concomitant]
     Active Substance: DEXAMETHASONE
  8. GEMCITABINE. [Suspect]
     Active Substance: GEMCITABINE
     Indication: CHOLANGIOCARCINOMA
     Dosage: ?          OTHER FREQUENCY:ONCE EVERY 14 DAYS;?
     Route: 042
     Dates: start: 20200413, end: 20201022
  9. XARELTO [Concomitant]
     Active Substance: RIVAROXABAN
  10. CALCIUM CARBONATE ANTACID [Concomitant]
  11. PACLITAXEL 150 MG/25 ML VIAL [Concomitant]
  12. LEUCOVORIN 200 MG VIAL [Concomitant]
  13. VITAMIN D3 [Concomitant]
     Active Substance: CHOLECALCIFEROL
  14. RETACRIT [Concomitant]
     Active Substance: EPOETIN ALFA-EPBX
  15. FLUOROURACIL. [Suspect]
     Active Substance: FLUOROURACIL
     Indication: CHOLANGIOCARCINOMA
     Dosage: ?          OTHER FREQUENCY:ONCE EVERY 14 DAYS;?
     Route: 042
     Dates: start: 20190729, end: 20201022
  16. SIMVASTATIN. [Concomitant]
     Active Substance: SIMVASTATIN
  17. VITAMIN B6 [Concomitant]
     Active Substance: PYRIDOXINE HYDROCHLORIDE
  18. METOPROLOL SUCCINATE ER [Concomitant]
     Active Substance: METOPROLOL SUCCINATE
  19. ZARXIO 300 MCG/0.5 ML SYRN [Concomitant]
  20. ONDANSETRON 4 MG/2 ML VIAL [Concomitant]
  21. OXALIPLATIN 50 MG/10 ML VIAL [Concomitant]

REACTIONS (2)
  - Appetite disorder [None]
  - Aphasia [None]

NARRATIVE: CASE EVENT DATE: 20201022
